FAERS Safety Report 4400927-0 (Version None)
Quarter: 2004Q3

REPORT INFORMATION
  Report Type: 
  Country: None (occurrence: None)
  Receive Date: 20040907
  Receipt Date: 20030814
  Transmission Date: 20050211
  Serious: No
  Sender: FDA-Public Use
  Company Number: US-BRISTOL-MYERS SQUIBB COMPANY-12355244

PATIENT
  Age: 77 Year
  Sex: Male
  Weight: 88 kg

DRUGS (8)
  1. COUMADIN [Suspect]
     Indication: ATRIAL FIBRILLATION
     Dosage: DOSAGE: 5MG FOR ONE DAY, THEN 2.5MG FOR THREE DAYS
     Route: 048
  2. GLUCOPHAGE [Concomitant]
  3. ATENOLOL [Concomitant]
  4. PROSCAR [Concomitant]
  5. HYTRIN [Concomitant]
  6. DIGOXIN [Concomitant]
  7. NEURONTIN [Concomitant]
  8. POTASSIUM [Concomitant]

REACTIONS (4)
  - ALANINE AMINOTRANSFERASE INCREASED [None]
  - ASTHENIA [None]
  - BACK PAIN [None]
  - PLATELET COUNT DECREASED [None]
